FAERS Safety Report 21836764 (Version 2)
Quarter: 2023Q1

REPORT INFORMATION
  Report Type: Spontaneous
  Country: AR (occurrence: AR)
  Receive Date: 20230109
  Receipt Date: 20230216
  Transmission Date: 20230418
  Serious: Yes (Disabling)
  Sender: FDA-Public Use
  Company Number: AR-002147023-NVSC2023AR002232

PATIENT
  Sex: Male

DRUGS (1)
  1. XOLAIR [Suspect]
     Active Substance: OMALIZUMAB
     Indication: Asthma
     Route: 065
     Dates: start: 2018

REACTIONS (4)
  - Hip deformity [Unknown]
  - Gait disturbance [Unknown]
  - Nervousness [Unknown]
  - Memory impairment [Unknown]
